FAERS Safety Report 11866244 (Version 1)
Quarter: 2015Q4

REPORT INFORMATION
  Report Type: Report from Study
  Country: US (occurrence: US)
  Receive Date: 20151223
  Receipt Date: 20151223
  Transmission Date: 20160305
  Serious: Yes (Hospitalization, Other)
  Sender: FDA-Public Use
  Company Number: US-GILEAD-2015-0189400

PATIENT
  Age: 42 Year
  Sex: Male

DRUGS (1)
  1. RANOLAZINE [Suspect]
     Active Substance: RANOLAZINE
     Indication: ANGINA PECTORIS
     Dosage: 500 MG, UNK
     Route: 048

REACTIONS (7)
  - Coronary artery disease [Unknown]
  - Cough [Unknown]
  - Dizziness [Unknown]
  - Respiratory disorder [Unknown]
  - Pyrexia [Unknown]
  - Pneumonia [Unknown]
  - Dyspnoea [Unknown]
